FAERS Safety Report 8962287 (Version 1)
Quarter: 2012Q4

REPORT INFORMATION
  Report Type: Report from Study
  Country: US (occurrence: US)
  Receive Date: 20121212
  Receipt Date: 20121212
  Transmission Date: 20130627
  Serious: Yes (Other)
  Sender: FDA-Public Use
  Company Number: US-PFIZER INC-2012308103

PATIENT
  Sex: Female

DRUGS (2)
  1. LIPITOR [Suspect]
  2. GLIBENCLAMIDE [Suspect]

REACTIONS (3)
  - Fall [Unknown]
  - Myalgia [Unknown]
  - Arthralgia [Unknown]
